FAERS Safety Report 9952620 (Version 2)
Quarter: 2014Q1

REPORT INFORMATION
  Report Type: Spontaneous
  Country: FR (occurrence: FR)
  Receive Date: 20140304
  Receipt Date: 20140314
  Transmission Date: 20141002
  Serious: Yes (Hospitalization, Other)
  Sender: FDA-Public Use
  Company Number: FR-PFIZER INC-2014056337

PATIENT
  Age: 33 Year
  Sex: Male

DRUGS (6)
  1. LYRICA [Suspect]
     Indication: NEUROPATHY PERIPHERAL
     Dosage: 50 MG, 3X/DAY
     Route: 048
     Dates: start: 20130628, end: 20130724
  2. ZYVOXID [Suspect]
     Indication: PULMONARY TUBERCULOSIS
     Dosage: 600 MG, DAILY
     Route: 048
     Dates: start: 20120911, end: 20130724
  3. AMIKACIN MYLAN [Suspect]
     Indication: PULMONARY TUBERCULOSIS
     Dosage: UNK
     Route: 042
     Dates: start: 20120911, end: 20130411
  4. AMIKACIN MYLAN [Suspect]
     Dosage: 3X550 MG PER WEEK
     Route: 042
     Dates: start: 20130531
  5. PASER [Suspect]
     Indication: PULMONARY TUBERCULOSIS
     Dosage: 16 G, 1X/DAY
     Route: 048
     Dates: start: 20120911
  6. IZILOX [Suspect]
     Indication: PULMONARY TUBERCULOSIS
     Dosage: 400 MG, 1X/DAY
     Route: 048
     Dates: start: 20120911

REACTIONS (5)
  - Cholecystitis [Recovered/Resolved with Sequelae]
  - Visual acuity reduced [Unknown]
  - Optic neuritis [Unknown]
  - Diplopia [Unknown]
  - Drug ineffective [Unknown]
